FAERS Safety Report 13676675 (Version 1)
Quarter: 2017Q2

REPORT INFORMATION
  Report Type: Spontaneous
  Country: US (occurrence: US)
  Receive Date: 20170622
  Receipt Date: 20170622
  Transmission Date: 20170830
  Serious: No
  Sender: FDA-Public Use
  Company Number: US-PFIZER INC-2017270764

PATIENT
  Age: 47 Year
  Sex: Female
  Weight: 98 kg

DRUGS (3)
  1. EXEMESTANE. [Suspect]
     Active Substance: EXEMESTANE
     Indication: BREAST CANCER
     Dosage: 25 MG, 1X/DAY
     Route: 048
     Dates: start: 201703
  2. GOSERELIN ACETATE [Concomitant]
     Active Substance: GOSERELIN ACETATE
     Indication: MENOPAUSE
  3. GOSERELIN ACETATE [Concomitant]
     Active Substance: GOSERELIN ACETATE
     Indication: ANTIOESTROGEN THERAPY
     Dosage: 1 DF, MONTHLY
     Dates: start: 2016, end: 2016

REACTIONS (3)
  - Swollen tongue [Unknown]
  - Depression [Unknown]
  - Condition aggravated [Unknown]
